FAERS Safety Report 9847366 (Version 1)
Quarter: 2014Q1

REPORT INFORMATION
  Report Type: Spontaneous
  Country: US (occurrence: US)
  Receive Date: 20140127
  Receipt Date: 20140127
  Transmission Date: 20141002
  Serious: No
  Sender: FDA-Public Use
  Company Number: US-MYLANLABS-2013S1004727

PATIENT
  Age: 56 Year
  Sex: Female

DRUGS (4)
  1. LETROZOLE TABLETS, USP, 2.5MG; MFR/LABLER: SUN PHARM [Suspect]
     Indication: BREAST CANCER
     Route: 048
     Dates: start: 20121217, end: 201212
  2. VITAMIN D [Concomitant]
     Route: 048
  3. COLACE [Concomitant]
     Indication: CONSTIPATION
     Route: 048
  4. BONIVA [Concomitant]
     Indication: OSTEOPOROSIS
     Route: 048

REACTIONS (2)
  - Breast pain [Recovered/Resolved]
  - Breast tenderness [Recovered/Resolved]
